FAERS Safety Report 5732455-4 (Version None)
Quarter: 2008Q2

REPORT INFORMATION
  Report Type: 
  Country: None (occurrence: None)
  Receive Date: 20080508
  Receipt Date: 20080429
  Transmission Date: 20081010
  Serious: Yes (Other)
  Sender: FDA-Public Use
  Company Number: GB-AMGEN-US265553

PATIENT
  Sex: Female
  Weight: 20.9 kg

DRUGS (4)
  1. ENBREL [Suspect]
     Indication: JUVENILE ARTHRITIS
     Route: 058
     Dates: start: 20060711, end: 20061113
  2. METHOTREXATE [Concomitant]
     Route: 058
     Dates: start: 20041001
  3. PREDNISOLONE [Concomitant]
     Route: 047
     Dates: start: 20060901
  4. IBUPROFEN TABLETS [Concomitant]
     Dosage: UNKNOWN
     Dates: end: 20040701

REACTIONS (3)
  - CONDITION AGGRAVATED [None]
  - IRIDOCYCLITIS [None]
  - UVEITIS [None]
